FAERS Safety Report 23333219 (Version 2)
Quarter: 2023Q4

REPORT INFORMATION
  Report Type: Spontaneous
  Country: US (occurrence: None)
  Receive Date: 20231222
  Receipt Date: 20231228
  Transmission Date: 20240109
  Serious: Yes (Hospitalization, Other)
  Sender: FDA-Public Use
  Company Number: 2023A287634

PATIENT
  Age: 71 Year
  Sex: Female
  Weight: 66.9 kg

DRUGS (2)
  1. OLAPARIB [Suspect]
     Active Substance: OLAPARIB
     Indication: Epithelioid mesothelioma
     Route: 048
     Dates: start: 20221116, end: 20231217
  2. OLAPARIB [Suspect]
     Active Substance: OLAPARIB
     Indication: Mesothelioma
     Route: 048
     Dates: start: 20221116, end: 20231217

REACTIONS (31)
  - Pericardial effusion [Unknown]
  - Diarrhoea [Recovering/Resolving]
  - Ventricular extrasystoles [Unknown]
  - Hyperdynamic left ventricle [Unknown]
  - Mediastinal mass [Unknown]
  - Red cell distribution width increased [Unknown]
  - Pleural calcification [Unknown]
  - Atelectasis [Unknown]
  - Pleural effusion [Unknown]
  - Arteriosclerosis [Unknown]
  - Pleural thickening [Unknown]
  - Right ventricular systolic pressure increased [Unknown]
  - Brain natriuretic peptide abnormal [Unknown]
  - Cardiomegaly [Unknown]
  - Pericardial mass [Unknown]
  - Electrocardiogram T wave inversion [Unknown]
  - Tachycardia [Unknown]
  - Blood chloride abnormal [Unknown]
  - Blood urea abnormal [Unknown]
  - Blood creatinine [Unknown]
  - Blood calcium abnormal [Unknown]
  - Mean cell volume abnormal [Unknown]
  - Mean cell haemoglobin concentration abnormal [Unknown]
  - Mean platelet volume abnormal [Unknown]
  - Mediastinal disorder [Unknown]
  - Spinal osteoarthritis [Unknown]
  - Pain [Unknown]
  - Bone disorder [Unknown]
  - Blood potassium abnormal [Unknown]
  - Blood creatinine abnormal [Unknown]
  - Hypokalaemia [Unknown]

NARRATIVE: CASE EVENT DATE: 20231216
